FAERS Safety Report 20840313 (Version 3)
Quarter: 2022Q2

REPORT INFORMATION
  Report Type: Spontaneous
  Country: US (occurrence: US)
  Receive Date: 20220517
  Receipt Date: 20220614
  Transmission Date: 20220720
  Serious: No
  Sender: FDA-Public Use
  Company Number: US-PFIZER INC-202200657551

PATIENT
  Age: 71 Year
  Sex: Male

DRUGS (1)
  1. INLYTA [Suspect]
     Active Substance: AXITINIB
     Dosage: UNK

REACTIONS (5)
  - Blood pressure increased [Unknown]
  - Dysphonia [Unknown]
  - Diarrhoea [Unknown]
  - Asthenia [Unknown]
  - Product dose omission in error [Unknown]
